FAERS Safety Report 5923286-0 (Version None)
Quarter: 2008Q4

REPORT INFORMATION
  Report Type: 
  Country: None (occurrence: None)
  Receive Date: 20081014
  Receipt Date: 20080929
  Transmission Date: 20090506
  Serious: Yes (Hospitalization, Other)
  Sender: FDA-Public Use
  Company Number: 2008BI022212

PATIENT
  Age: 42 Year
  Sex: Male
  Weight: 64.8644 kg

DRUGS (11)
  1. TYSABRI [Suspect]
     Indication: MULTIPLE SCLEROSIS
     Dosage: 300 MG; QM; IV
     Route: 042
     Dates: start: 20080211, end: 20080820
  2. CYMBALTA [Concomitant]
  3. DARVOCET [Concomitant]
  4. TEMAZEPAM [Concomitant]
  5. NAPROXEN [Concomitant]
  6. CONCERTA [Concomitant]
  7. TRAMADOL HCL [Concomitant]
  8. IBUPROFEN [Concomitant]
  9. DULCOLAX [Concomitant]
  10. LEUCOVORIN CALCIUM [Concomitant]
  11. PRILOSEC [Concomitant]

REACTIONS (25)
  - ANAEMIA MACROCYTIC [None]
  - BIOPSY BONE MARROW ABNORMAL [None]
  - BLOOD GLUCOSE INCREASED [None]
  - BRAIN ABSCESS [None]
  - CATHETER RELATED INFECTION [None]
  - CENTRAL NERVOUS SYSTEM NECROSIS [None]
  - CEREBRAL TOXOPLASMOSIS [None]
  - COMPLEX PARTIAL SEIZURES [None]
  - CONDITION AGGRAVATED [None]
  - DIABETES MELLITUS [None]
  - DRUG ERUPTION [None]
  - DRUG WITHDRAWAL SYNDROME [None]
  - ERYTHROPOIESIS ABNORMAL [None]
  - GLIOSIS [None]
  - INTERNATIONAL NORMALISED RATIO INCREASED [None]
  - LEUKOENCEPHALOPATHY [None]
  - MULTIPLE SCLEROSIS [None]
  - OPPORTUNISTIC INFECTION [None]
  - PETECHIAE [None]
  - POST PROCEDURAL COMPLICATION [None]
  - POST PROCEDURAL HAEMORRHAGE [None]
  - PSYCHOTIC DISORDER [None]
  - STAPHYLOCOCCAL BACTERAEMIA [None]
  - THROMBOCYTOPENIA [None]
  - URINARY RETENTION [None]
